FAERS Safety Report 11739733 (Version 1)
Quarter: 2015Q4

REPORT INFORMATION
  Report Type: Spontaneous
  Country: FR (occurrence: FR)
  Receive Date: 20151113
  Receipt Date: 20151113
  Transmission Date: 20160304
  Serious: Yes (Hospitalization)
  Sender: FDA-Public Use
  Company Number: FR-009507513-1511FRA007475

PATIENT
  Age: 83 Year
  Sex: Male

DRUGS (21)
  1. JANUMET [Suspect]
     Active Substance: METFORMIN HYDROCHLORIDE\SITAGLIPTIN PHOSPHATE
     Dosage: 1 DF IN THE MORNING, 1 DF IN THE EVENING
     Route: 048
     Dates: end: 20150910
  2. DIAMICRON [Suspect]
     Active Substance: GLICLAZIDE
     Dosage: 1 DF, IN THE MORNING
     Route: 048
     Dates: end: 20150910
  3. NOVO-NORM [Suspect]
     Active Substance: REPAGLINIDE
     Dosage: 1 DF, QD
     Route: 048
     Dates: start: 20150729, end: 20150910
  4. INEXIUM (ESOMEPRAZOLE SODIUM) [Concomitant]
     Active Substance: ESOMEPRAZOLE SODIUM
  5. KARDEGIC [Concomitant]
     Active Substance: ASPIRIN LYSINE
  6. TRIATEC (RAMIPRIL) [Concomitant]
     Active Substance: RAMIPRIL
  7. LYRICA [Concomitant]
     Active Substance: PREGABALIN
  8. JANUMET [Suspect]
     Active Substance: METFORMIN HYDROCHLORIDE\SITAGLIPTIN PHOSPHATE
     Dosage: 1 DF IN THE MORNING, 1 DF IN THE EVENING
     Route: 048
     Dates: end: 20150910
  9. AMOXICILLIN. [Suspect]
     Active Substance: AMOXICILLIN
     Dosage: 3000 MG (500 MG 6 PER DAY)
     Route: 048
     Dates: start: 20150818, end: 20150825
  10. TRANSIPEG [Concomitant]
     Active Substance: POLYETHYLENE GLYCOL 3350
  11. SPECIAFOLDINE [Suspect]
     Active Substance: FOLIC ACID
     Dosage: 1 DF, IN THE MORNING
     Route: 048
     Dates: end: 20150924
  12. FENTANYL. [Concomitant]
     Active Substance: FENTANYL
  13. PYOSTACINE [Concomitant]
     Active Substance: PRISTINAMYCIN
  14. SIMVASTATIN. [Concomitant]
     Active Substance: SIMVASTATIN
  15. AUGMENTIN [Suspect]
     Active Substance: AMOXICILLIN\CLAVULANATE POTASSIUM
     Dosage: 3 G ( 1G 3 PER DAY)
     Route: 048
     Dates: start: 20150917, end: 20150921
  16. FUROSEMIDE. [Concomitant]
     Active Substance: FUROSEMIDE
  17. ACETAMINOPHEN. [Concomitant]
     Active Substance: ACETAMINOPHEN
  18. LERCANIDIPINE HYDROCHLORIDE [Concomitant]
     Active Substance: LERCANIDIPINE HYDROCHLORIDE
  19. ADANCOR [Concomitant]
     Active Substance: NICORANDIL
  20. SOTALOL HYDROCHLORIDE. [Concomitant]
     Active Substance: SOTALOL HYDROCHLORIDE
  21. SACCHAROMYCES [Concomitant]
     Active Substance: SACCHAROMYCES CEREVISIAE

REACTIONS (3)
  - Eosinophilia [Recovered/Resolved]
  - Pyrexia [Recovered/Resolved]
  - Rash erythematous [Recovering/Resolving]

NARRATIVE: CASE EVENT DATE: 20150917
